FAERS Safety Report 15444605 (Version 1)
Quarter: 2018Q3

REPORT INFORMATION
  Report Type: Spontaneous
  Country: US (occurrence: US)
  Receive Date: 20180928
  Receipt Date: 20180928
  Transmission Date: 20181010
  Serious: Yes (Hospitalization)
  Sender: FDA-Public Use
  Company Number: US-NOVAST LABORATORIES, LTD-US-2018NOV000343

PATIENT
  Age: 33 Year
  Sex: Female

DRUGS (1)
  1. BUTALBITAL, ACETAMINOPHEN, AND CAFFEINE [Suspect]
     Active Substance: ACETAMINOPHEN\BUTALBITAL\CAFFEINE
     Indication: PRODUCT USED FOR UNKNOWN INDICATION
     Dosage: 30 G, UNK
     Route: 048

REACTIONS (8)
  - Toxicity to various agents [Unknown]
  - Intentional overdose [Unknown]
  - Acute kidney injury [Unknown]
  - Cardiac failure congestive [Unknown]
  - Acute lung injury [Unknown]
  - Acute hepatic failure [Recovering/Resolving]
  - Suicide attempt [Unknown]
  - Exposure during pregnancy [Unknown]
